FAERS Safety Report 6201498-9 (Version None)
Quarter: 2009Q2

REPORT INFORMATION
  Report Type: 
  Country: None (occurrence: None)
  Receive Date: 20090526
  Receipt Date: 20090519
  Transmission Date: 20091009
  Serious: Yes (Other)
  Sender: FDA-Public Use
  Company Number: GB-ROCHE-634076

PATIENT
  Sex: Male
  Weight: 87 kg

DRUGS (4)
  1. CAPECITABINE [Suspect]
     Route: 048
     Dates: start: 20081127
  2. BEVACIZUMAB [Suspect]
     Route: 042
     Dates: start: 20081127
  3. CISPLATIN [Suspect]
     Route: 042
     Dates: start: 20081127
  4. EPIRUBICIN [Suspect]
     Route: 042
     Dates: start: 20081127

REACTIONS (1)
  - LEUKOENCEPHALOPATHY [None]
